FAERS Safety Report 4946526-3 (Version None)
Quarter: 2006Q1

REPORT INFORMATION
  Report Type: 
  Country: None (occurrence: None)
  Receive Date: 20060317
  Receipt Date: 20060306
  Transmission Date: 20060701
  Serious: Yes (Other)
  Sender: FDA-Public Use
  Company Number: CA-JNJFOC-20060302587

PATIENT
  Age: 67 Year
  Sex: Female

DRUGS (4)
  1. INFLIXIMAB [Suspect]
     Route: 042
  2. INFLIXIMAB [Suspect]
     Indication: RHEUMATOID ARTHRITIS
     Route: 042
  3. PREDNISONE [Concomitant]
  4. METHOTREXATE [Concomitant]

REACTIONS (5)
  - CELLULITIS [None]
  - MYCOBACTERIAL INFECTION [None]
  - SECRETION DISCHARGE [None]
  - SOFT TISSUE INFECTION [None]
  - TOE DEFORMITY [None]
